FAERS Safety Report 4425024-X (Version None)
Quarter: 2004Q3

REPORT INFORMATION
  Report Type: 
  Country: None (occurrence: None)
  Receive Date: 20040809
  Receipt Date: 20040709
  Transmission Date: 20050211
  Serious: Yes (Death)
  Sender: FDA-Public Use
  Company Number: US-JNJFOC-20040801802

PATIENT

DRUGS (1)
  1. LEVAQUIN [Suspect]

REACTIONS (1)
  - HYPOGLYCAEMIA [None]
